FAERS Safety Report 11688084 (Version 1)
Quarter: 2015Q4

REPORT INFORMATION
  Report Type: Spontaneous
  Country: JP (occurrence: JP)
  Receive Date: 20151030
  Receipt Date: 20151030
  Transmission Date: 20160304
  Serious: Yes (Hospitalization, Other)
  Sender: FDA-Public Use
  Company Number: PHJP2015JP016855

PATIENT
  Age: 55 Year
  Sex: Male
  Weight: 47 kg

DRUGS (2)
  1. PENICILLAMINE [Concomitant]
     Active Substance: PENICILLAMINE
     Indication: HEPATO-LENTICULAR DEGENERATION
     Dosage: 900 MG, QD
     Route: 048
  2. SANDIMMUNE [Suspect]
     Active Substance: CYCLOSPORINE
     Indication: PSORIASIS
     Dosage: 100 MG, QD
     Route: 048
     Dates: start: 1995

REACTIONS (14)
  - Back pain [Unknown]
  - Urine copper increased [None]
  - Portal vein thrombosis [Recovering/Resolving]
  - Gait disturbance [None]
  - Musculoskeletal stiffness [None]
  - Platelet count decreased [None]
  - Tumour thrombosis [None]
  - Hepatocellular carcinoma [Recovered/Resolved]
  - Cerebral atrophy [None]
  - Hepatocellular carcinoma [Recovering/Resolving]
  - Procedural haemorrhage [None]
  - Dysarthria [None]
  - Hepatic cirrhosis [None]
  - White blood cell count decreased [None]

NARRATIVE: CASE EVENT DATE: 201209
